FAERS Safety Report 5197169-0 (Version None)
Quarter: 2006Q4

REPORT INFORMATION
  Report Type: 
  Country: None (occurrence: None)
  Receive Date: 20061227
  Receipt Date: 20061214
  Transmission Date: 20070319
  Serious: Yes (Hospitalization)
  Sender: FDA-Public Use
  Company Number: 2006300690

PATIENT
  Age: 56 Year
  Sex: Male
  Weight: 78 kg

DRUGS (7)
  1. NICORETTE [Suspect]
     Dosage: 1 PATCH DAILY, TRANSDERMAL
     Route: 062
     Dates: start: 20060817, end: 20060915
  2. FRAXODI (NADROPARIN CALCIUM) [Suspect]
     Indication: DEEP VEIN THROMBOSIS
     Dosage: 1 ML DAILY, SUBCUTANEOUS
     Route: 058
     Dates: start: 20060826, end: 20060915
  3. NEXIUM [Suspect]
     Dosage: 20 MG DAILY, ORAL
     Route: 048
     Dates: start: 20060825, end: 20060906
  4. EFFERALGAN CODEINE (CODEINE PHOSPHATE, PARACETAMOL) [Concomitant]
  5. PREVISCAN (FLUINDIONE) [Concomitant]
  6. PREDNISOLONE [Concomitant]
  7. ATARAX [Concomitant]

REACTIONS (2)
  - CHOLESTASIS [None]
  - CYTOLYTIC HEPATITIS [None]
